FAERS Safety Report 9649136 (Version 1)
Quarter: 2013Q4

REPORT INFORMATION
  Report Type: Spontaneous
  Country: US (occurrence: US)
  Receive Date: 20131028
  Receipt Date: 20131028
  Transmission Date: 20140711
  Serious: Yes (Hospitalization)
  Sender: FDA-Public Use
  Company Number: -SAAVPROD-POMP-1003133

PATIENT
  Age: 36 Year
  Sex: Male

DRUGS (1)
  1. ALGLUCOSIDASE ALFA [Suspect]
     Indication: GLYCOGEN STORAGE DISEASE TYPE II
     Dosage: 1100 MG, Q2W
     Route: 042
     Dates: start: 20130709

REACTIONS (3)
  - Dyspnoea [Unknown]
  - Weight increased [Unknown]
  - Pyrexia [Unknown]
